FAERS Safety Report 18644259 (Version 1)
Quarter: 2020Q4

REPORT INFORMATION
  Report Type: Spontaneous
  Country: US (occurrence: US)
  Receive Date: 20201221
  Receipt Date: 20201221
  Transmission Date: 20210114
  Serious: No
  Sender: FDA-Public Use
  Company Number: US-BIOHAVEN PHARMACEUTICALS-2020BHV00526

PATIENT
  Age: 64 Year
  Sex: Female
  Weight: 79.37 kg

DRUGS (24)
  1. XANAX [Concomitant]
     Active Substance: ALPRAZOLAM
  2. ^LOMOTROGIN^ [Concomitant]
  3. MAGNESIUM [Concomitant]
     Active Substance: MAGNESIUM
  4. COENZYME Q10 [Concomitant]
     Active Substance: DIETARY SUPPLEMENT\UBIDECARENONE
  5. VITAMIN D [Concomitant]
     Active Substance: VITAMIN D NOS
  6. DESVENLAFAXINE SUCCINATE. [Concomitant]
     Active Substance: DESVENLAFAXINE SUCCINATE
  7. UNSPECIFIED ALLERGY PILL [Concomitant]
  8. METFORMIN [Concomitant]
     Active Substance: METFORMIN HYDROCHLORIDE
  9. MONTELUKAST [Concomitant]
     Active Substance: MONTELUKAST SODIUM
  10. TRULICITY [Concomitant]
     Active Substance: DULAGLUTIDE
     Dosage: UNK, 1X/WEEK
  11. NURTEC ODT [Suspect]
     Active Substance: RIMEGEPANT SULFATE
     Indication: MIGRAINE
     Dosage: 75 MG, ONCE
     Route: 048
     Dates: start: 20200926
  12. LEVOTHYROXINE. [Concomitant]
     Active Substance: LEVOTHYROXINE
  13. FISH OIL [Concomitant]
     Active Substance: FISH OIL
  14. NASACORT [Concomitant]
     Active Substance: TRIAMCINOLONE ACETONIDE
  15. BOTOX [Concomitant]
     Active Substance: ONABOTULINUMTOXINA
  16. BABY ASPIRIN [Concomitant]
     Active Substance: ASPIRIN
  17. ^DOUPLAIN^ [Concomitant]
  18. NEXIUM [Concomitant]
     Active Substance: ESOMEPRAZOLE MAGNESIUM
  19. FLOVENT [Concomitant]
     Active Substance: FLUTICASONE PROPIONATE
  20. NOVOLOG [Concomitant]
     Active Substance: INSULIN ASPART
  21. ^TGAO^ [Concomitant]
     Dosage: UNK, 1X/DAY
  22. CENTRUM VITAMIN [Concomitant]
  23. ^LISIONPRIL^ [Concomitant]
  24. TORVISTATIN [Concomitant]
     Active Substance: ATORVASTATIN

REACTIONS (1)
  - Parosmia [Recovered/Resolved]

NARRATIVE: CASE EVENT DATE: 20200926
